FAERS Safety Report 4613673-5 (Version None)
Quarter: 2005Q1

REPORT INFORMATION
  Report Type: 
  Country: None (occurrence: None)
  Receive Date: 20050321
  Receipt Date: 20050308
  Transmission Date: 20050727
  Serious: Yes (Other)
  Sender: FDA-Public Use
  Company Number: 200511854US

PATIENT
  Age: 60 Year
  Sex: Male

DRUGS (2)
  1. ANZEMET [Suspect]
     Indication: NAUSEA
     Route: 042
     Dates: start: 20050305
  2. MORPHINE [Concomitant]

REACTIONS (2)
  - COMA [None]
  - TREMOR [None]
